FAERS Safety Report 8847104 (Version 1)
Quarter: 2012Q4

REPORT INFORMATION
  Report Type: 
  Country: DE (occurrence: DE)
  Receive Date: 20121018
  Receipt Date: 20121018
  Transmission Date: 20130627
  Serious: Yes (Life-Threatening, Hospitalization)
  Sender: FDA-Public Use
  Company Number: DE-009507513-1210DEU002934

PATIENT
  Age: 48 Year
  Sex: Female

DRUGS (3)
  1. ZOELY [Suspect]
     Indication: CONTRACEPTION
     Dosage: UNK
     Route: 048
     Dates: start: 20120713
  2. AERIUS (DESLORATADINE) [Concomitant]
     Route: 048
  3. CORTISONE [Concomitant]

REACTIONS (2)
  - Anaphylactic shock [Not Recovered/Not Resolved]
  - Hypersensitivity [Not Recovered/Not Resolved]
